FAERS Safety Report 5486406-0 (Version None)
Quarter: 2007Q4

REPORT INFORMATION
  Report Type: 
  Country: None (occurrence: None)
  Receive Date: 20071012
  Receipt Date: 20070927
  Transmission Date: 20080405
  Serious: Yes (Hospitalization)
  Sender: FDA-Public Use
  Company Number: ALK_00366_2007

PATIENT
  Sex: Female
  Weight: 81.6475 kg

DRUGS (13)
  1. VIVITROL [Suspect]
     Indication: ALCOHOLISM
     Dosage: (380 MG 1X/MONTH INTRAMUSCULAR)
     Route: 030
     Dates: start: 20070829, end: 20070829
  2. LORAZEPAM [Suspect]
     Indication: AGGRESSION
     Dates: start: 20070829
  3. LORAZEPAM [Suspect]
     Indication: DELIRIUM
     Dates: start: 20070829
  4. LAMICTAL [Concomitant]
  5. SEROQUEL [Concomitant]
  6. LITHIUM [Concomitant]
  7. WELLBUTRIN [Concomitant]
  8. EFFEXOR XR [Concomitant]
  9. LYRICA [Concomitant]
  10. REGLAN [Concomitant]
  11. LEVOTHROID [Concomitant]
  12. LIPITOR [Concomitant]
  13. IMITREX [Concomitant]

REACTIONS (7)
  - AGGRESSION [None]
  - DELIRIUM [None]
  - DIZZINESS [None]
  - HYPERHIDROSIS [None]
  - NAUSEA [None]
  - RESPIRATORY DEPRESSION [None]
  - TREMOR [None]
